FAERS Safety Report 19139668 (Version 1)
Quarter: 2021Q2

REPORT INFORMATION
  Report Type: Spontaneous
  Country: BR (occurrence: BR)
  Receive Date: 20210415
  Receipt Date: 20210415
  Transmission Date: 20210717
  Serious: Yes (Other)
  Sender: FDA-Public Use
  Company Number: BR-UNITED THERAPEUTICS-UNT-2021-006014

PATIENT
  Sex: Male

DRUGS (2)
  1. CRIZOTINIB [Suspect]
     Active Substance: CRIZOTINIB
     Indication: PRODUCT USED FOR UNKNOWN INDICATION
     Dosage: UNK
     Route: 048
  2. UNITUXIN [Suspect]
     Active Substance: DINUTUXIMAB
     Indication: IMMUNOCHEMOTHERAPY
     Dosage: UNK, CYCLICAL
     Route: 041

REACTIONS (1)
  - Clostridium difficile infection [Unknown]
